FAERS Safety Report 25520510 (Version 1)
Quarter: 2025Q3

REPORT INFORMATION
  Report Type: Spontaneous
  Country: GB (occurrence: GB)
  Receive Date: 20250704
  Receipt Date: 20250704
  Transmission Date: 20251020
  Serious: Yes (Other)
  Sender: PFIZER
  Company Number: None

PATIENT
  Age: 79 Year

DRUGS (14)
  1. FLUCONAZOLE [Suspect]
     Active Substance: FLUCONAZOLE
  2. POLYETHYLENE GLYCOLS [Concomitant]
     Active Substance: POLYETHYLENE GLYCOLS
     Indication: Constipation
  3. VOLTAROL PAIN-EZE [DICLOFENAC DIETHYLAMINE] [Concomitant]
  4. ACETAMINOPHEN [Concomitant]
     Active Substance: ACETAMINOPHEN
  5. MORPHINE [Concomitant]
     Active Substance: MORPHINE
     Dosage: 5 MG MODIFIED-RELEASE TABLETS, 1 TO BE TAKEN EVERY 12 HRS (INSTEAD OF 10 MG BD), 14 TABLET
  6. BENZYDAMINE [Concomitant]
     Active Substance: BENZYDAMINE
     Indication: Oropharyngeal pain
  7. SENNOSIDES A AND B [Concomitant]
     Active Substance: SENNOSIDES A AND B
     Indication: Constipation
  8. AMLODIPINE [Concomitant]
     Active Substance: AMLODIPINE BESYLATE
     Dosage: 5 MG TABLETS, 1 TO BE TAKEN EACH DAY, 7 TABLET
  9. ENSURE COMPACT [Concomitant]
     Dosage: TAKE 1 BOTTLE OF 125 ML 3X A DAY, 10500 ML
  10. CASPOFUNGIN [Concomitant]
     Active Substance: CASPOFUNGIN
  11. MIRTAZAPINE [Concomitant]
     Active Substance: MIRTAZAPINE
     Dosage: 45 MG TABLETS, 1 TO BE TAKEN AT NIGHT, 7 TABLET
  12. CHLORHEXIDINE GLUCONATE [Concomitant]
     Active Substance: CHLORHEXIDINE GLUCONATE
  13. FOLIC ACID [Concomitant]
     Active Substance: FOLIC ACID
     Dosage: 5 MG TABLETS, 1 TO BE TAKEN EACH DAY, 7 TABLET
  14. FERROUS SULFATE [Concomitant]
     Active Substance: FERROUS SULFATE
     Dosage: 200 MG TABLETS, 1 TO BE TAKEN EACH DAY, 7 TABLET

REACTIONS (3)
  - Confusional state [Unknown]
  - Delirium [Unknown]
  - Hallucination [Recovered/Resolved]
